FAERS Safety Report 5268630-5 (Version None)
Quarter: 2007Q1

REPORT INFORMATION
  Report Type: 
  Country: None (occurrence: None)
  Receive Date: 20070313
  Receipt Date: 20070228
  Transmission Date: 20070707
  Serious: Yes (Hospitalization)
  Sender: FDA-Public Use
  Company Number: 237455

PATIENT
  Age: 69 Year
  Sex: Female
  Weight: 38 kg

DRUGS (14)
  1. RITUXAN [Suspect]
     Indication: NON-HODGKIN'S LYMPHOMA
     Dosage: 480 MG, INTRAVENOUS
     Route: 042
     Dates: start: 20061213
  2. ENDOAN (CYCLOPHOSPHAMIDE) [Concomitant]
  3. DOXORUBICIN HCL [Concomitant]
  4. ONCOVIN [Concomitant]
  5. PREDONINE (PREDNISOLONE, PRDNISOLONE ACETAT4E, PREDNISOLONE SODIUM SUC [Concomitant]
  6. ADALAT [Concomitant]
  7. LISINOPRIL [Concomitant]
  8. FAMOTIDINE [Concomitant]
  9. ALLOPURINOL [Concomitant]
  10. LEVOFLOXACIN [Concomitant]
  11. BAKTAR (SULFAMETHOXAZOLE, TRIMETHOPRIM) [Concomitant]
  12. RIZE ( CLOTIAZEPAM) [Concomitant]
  13. METHYCOBAL (MECOBALAMIN) [Concomitant]
  14. CLONAZEPAM [Concomitant]

REACTIONS (2)
  - ASTHMA [None]
  - VOMITING [None]
